FAERS Safety Report 20155267 (Version 1)
Quarter: 2021Q4

REPORT INFORMATION
  Report Type: Spontaneous
  Country: US (occurrence: US)
  Receive Date: 20211207
  Receipt Date: 20211207
  Transmission Date: 20220303
  Serious: No
  Sender: FDA-Public Use
  Company Number: US-JNJFOC-20211156580

PATIENT
  Sex: Female

DRUGS (1)
  1. IMODIUM A-D [Suspect]
     Active Substance: LOPERAMIDE HYDROCHLORIDE
     Indication: Diarrhoea
     Dosage: 2 TABLETS ON FIRST LOOSE STOOL AND 1 TABLET ON THE NEXT LOOSE STOOL EVERY LOOSE STOOL
     Route: 065
     Dates: start: 20211121

REACTIONS (2)
  - Drug ineffective [Unknown]
  - Expired product administered [Unknown]
